FAERS Safety Report 14092311 (Version 1)
Quarter: 2017Q4

REPORT INFORMATION
  Report Type: Spontaneous
  Country: US (occurrence: US)
  Receive Date: 20171015
  Receipt Date: 20171015
  Transmission Date: 20180321
  Serious: No
  Sender: FDA-Public Use
  Company Number: None

PATIENT
  Sex: Male
  Weight: 64.35 kg

DRUGS (6)
  1. NYSTATIN. [Concomitant]
     Active Substance: NYSTATIN
  2. LITHIUM. [Concomitant]
     Active Substance: LITHIUM
  3. ACETAMINOPHEN. [Concomitant]
     Active Substance: ACETAMINOPHEN
  4. TAMOXIFEN [Suspect]
     Active Substance: TAMOXIFEN
     Indication: BREAST CANCER MALE
     Dosage: ?          QUANTITY:1 TABLET(S);?
     Route: 048
     Dates: start: 20170901, end: 20170925
  5. FLUCONAZOLE. [Concomitant]
     Active Substance: FLUCONAZOLE
  6. IBUPROFEN. [Concomitant]
     Active Substance: IBUPROFEN

REACTIONS (1)
  - Pain [None]

NARRATIVE: CASE EVENT DATE: 20170925
